FAERS Safety Report 14665270 (Version 1)
Quarter: 2018Q1

REPORT INFORMATION
  Report Type: Spontaneous
  Country: US (occurrence: US)
  Receive Date: 20180321
  Receipt Date: 20180321
  Transmission Date: 20180509
  Serious: Yes (Hospitalization)
  Sender: FDA-Public Use
  Company Number: US-ASTRAZENECA-2018SE33743

PATIENT
  Age: 97 Day
  Sex: Male
  Weight: 6.5 kg

DRUGS (4)
  1. SYNAGIS [Suspect]
     Active Substance: PALIVIZUMAB
     Indication: PREMATURE BABY
     Route: 030
     Dates: start: 20171119
  2. SYNAGIS [Suspect]
     Active Substance: PALIVIZUMAB
     Indication: MULTIPLE PREGNANCY
     Dosage: 142.5 MG, UNKNOWN
     Route: 030
     Dates: start: 20171222
  3. SYNAGIS [Suspect]
     Active Substance: PALIVIZUMAB
     Indication: PREMATURE BABY
     Dosage: 142.5 MG, UNKNOWN
     Route: 030
     Dates: start: 20171222
  4. SYNAGIS [Suspect]
     Active Substance: PALIVIZUMAB
     Indication: MULTIPLE PREGNANCY
     Route: 030
     Dates: start: 20171119

REACTIONS (4)
  - Cough [Unknown]
  - Pyrexia [Recovered/Resolved]
  - Off label use [Unknown]
  - Bronchiolitis [Recovering/Resolving]

NARRATIVE: CASE EVENT DATE: 20171222
